FAERS Safety Report 8329125-5 (Version None)
Quarter: 2012Q2

REPORT INFORMATION
  Report Type: 
  Country: None (occurrence: None)
  Receive Date: 20120502
  Receipt Date: 20101015
  Transmission Date: 20120825
  Serious: No
  Sender: FDA-Public Use
  Company Number: US-TEVA-2010005463

PATIENT
  Sex: Female
  Weight: 64.922 kg

DRUGS (1)
  1. NUVIGIL [Suspect]
     Indication: BIPOLAR I DISORDER
     Dosage: 375 MILLIGRAM;
     Route: 048
     Dates: start: 20090101

REACTIONS (2)
  - DRUG PRESCRIBING ERROR [None]
  - DRUG INEFFECTIVE FOR UNAPPROVED INDICATION [None]
